FAERS Safety Report 24610411 (Version 4)
Quarter: 2025Q1

REPORT INFORMATION
  Report Type: Spontaneous
  Country: BR (occurrence: BR)
  Receive Date: 20241112
  Receipt Date: 20250107
  Transmission Date: 20250408
  Serious: No
  Sender: PFIZER
  Company Number: BR-PFIZER INC-PV202400142327

PATIENT
  Age: 15 Year
  Sex: Male

DRUGS (1)
  1. GENOTROPIN [Suspect]
     Active Substance: SOMATROPIN
     Dates: start: 20160914

REACTIONS (3)
  - Device information output issue [Unknown]
  - Device mechanical issue [Unknown]
  - Expired device used [Unknown]
